FAERS Safety Report 6117148-6 (Version None)
Quarter: 2009Q1

REPORT INFORMATION
  Report Type: 
  Country: None (occurrence: None)
  Receive Date: 20090314
  Receipt Date: 20090108
  Transmission Date: 20090719
  Serious: No
  Sender: FDA-Public Use
  Company Number: US-ABBOTT-09P-163-0496483-00

PATIENT
  Sex: Male
  Weight: 68.1 kg

DRUGS (11)
  1. HUMIRA [Suspect]
     Indication: CROHN'S DISEASE
     Route: 058
     Dates: start: 20070101
  2. HUMIRA [Suspect]
     Route: 058
     Dates: start: 20081217
  3. REMERON [Concomitant]
     Indication: DEPRESSION
     Dosage: UNSURE OF STRENGTH
     Route: 048
  4. ALPRAZOLAM [Concomitant]
     Indication: ANXIETY
     Route: 048
  5. FENTANYL TRANSDERMAL SYSTEM [Concomitant]
     Indication: ABDOMINAL PAIN
     Route: 061
  6. TRIAMTERENE AND HYDROCHLOROTHIAZIDE [Concomitant]
     Indication: HYPERTENSION
     Dosage: 37.5/25 QD
     Route: 048
  7. SEROQUEL [Concomitant]
     Indication: AFFECTIVE DISORDER
     Route: 048
  8. SEROQUEL [Concomitant]
     Indication: INSOMNIA
  9. IMURAN [Concomitant]
     Indication: CROHN'S DISEASE
     Route: 048
  10. OXYCODONE HCL [Concomitant]
     Indication: ABDOMINAL PAIN
     Dosage: LIQ ORAL CONC SOLN
     Route: 048
  11. UNKNOWN MEDICATION [Concomitant]
     Indication: DRUG USE FOR UNKNOWN INDICATION
     Route: 024

REACTIONS (4)
  - ABDOMINAL PAIN [None]
  - COLD SWEAT [None]
  - DRUG DOSE OMISSION [None]
  - INJECTION SITE PAIN [None]
